FAERS Safety Report 6596284-4 (Version None)
Quarter: 2010Q1

REPORT INFORMATION
  Report Type: 
  Country: None (occurrence: None)
  Receive Date: 20100223
  Receipt Date: 20100211
  Transmission Date: 20100710
  Serious: Yes (Hospitalization, Other)
  Sender: FDA-Public Use
  Company Number: PHHY2010BR07877

PATIENT
  Sex: Female

DRUGS (1)
  1. RASILEZ HCT [Suspect]
     Dosage: 300/12.5 MG

REACTIONS (4)
  - BLOOD PRESSURE INCREASED [None]
  - BRAIN OEDEMA [None]
  - MIGRAINE [None]
  - PNEUMONIA [None]
